FAERS Safety Report 15691109 (Version 1)
Quarter: 2018Q4

REPORT INFORMATION
  Report Type: Spontaneous
  Country: JP (occurrence: JP)
  Receive Date: 20181205
  Receipt Date: 20181205
  Transmission Date: 20190205
  Serious: Yes (Other)
  Sender: FDA-Public Use
  Company Number: JP-SA-2017SA168245

PATIENT
  Age: 34 Year
  Sex: Female

DRUGS (6)
  1. LOXONIN [Suspect]
     Active Substance: LOXOPROFEN SODIUM
     Indication: BRONCHITIS
     Dosage: 60 MG, TID
     Route: 048
     Dates: start: 201403
  2. KETOPROFEN. [Suspect]
     Active Substance: KETOPROFEN
     Indication: BRONCHITIS
     Dosage: 20 MG X 7 SHEETS FOR 7 DAYS
     Route: 065
  3. ALLEGRA [Suspect]
     Active Substance: FEXOFENADINE HYDROCHLORIDE
     Indication: BRONCHITIS
     Dosage: 60 MG, QD
     Route: 048
     Dates: start: 201403
  4. MONTELUKAST SODIUM. [Suspect]
     Active Substance: MONTELUKAST SODIUM
     Indication: BRONCHITIS
     Dosage: 10 MG, QD
     Route: 048
     Dates: start: 201403
  5. MEDICON A [Concomitant]
     Indication: BRONCHITIS
     Dosage: 15MG 3 TABLETS
     Route: 048
     Dates: start: 201403
  6. MONTELUKAST [Suspect]
     Active Substance: MONTELUKAST SODIUM
     Indication: BRONCHITIS
     Dosage: UNK
     Route: 065
     Dates: start: 201403

REACTIONS (2)
  - Alopecia universalis [Not Recovered/Not Resolved]
  - Alopecia areata [Not Recovered/Not Resolved]

NARRATIVE: CASE EVENT DATE: 201405
